FAERS Safety Report 20403988 (Version 2)
Quarter: 2022Q2

REPORT INFORMATION
  Report Type: Report from Study
  Country: US (occurrence: None)
  Receive Date: 20220131
  Receipt Date: 20220609
  Transmission Date: 20220721
  Serious: Yes (Other)
  Sender: FDA-Public Use
  Company Number: US-Merck Healthcare KGaA-9133696

PATIENT
  Age: 66 Year
  Sex: Female

DRUGS (1)
  1. REBIF [Suspect]
     Active Substance: INTERFERON BETA-1A
     Indication: Multiple sclerosis
     Dosage: PREVIOUSLY REBIJECT II, NOW REBIF PREFILLED SYRINGE ?BATCH NUMBER: AUO32544,EXPIRY DATE: 01/NOV/2022
     Route: 058
     Dates: start: 20080909

REACTIONS (11)
  - Cerebral atrophy [Unknown]
  - Injection site bruising [Unknown]
  - Injection site pain [Unknown]
  - Multiple sclerosis [Unknown]
  - Balance disorder [Not Recovered/Not Resolved]
  - Memory impairment [Not Recovered/Not Resolved]
  - Temperature intolerance [Not Recovered/Not Resolved]
  - Dysphagia [Not Recovered/Not Resolved]
  - Gait disturbance [Unknown]
  - Cognitive disorder [Recovering/Resolving]
  - Treatment noncompliance [Unknown]

NARRATIVE: CASE EVENT DATE: 20201201
